FAERS Safety Report 14573938 (Version 1)
Quarter: 2018Q1

REPORT INFORMATION
  Report Type: Spontaneous
  Country: JP (occurrence: JP)
  Receive Date: 20180226
  Receipt Date: 20180226
  Transmission Date: 20180509
  Serious: Yes (Death, Other)
  Sender: FDA-Public Use
  Company Number: JP-PFIZER INC-2018075402

PATIENT
  Age: 90 Year
  Sex: Male

DRUGS (2)
  1. INLYTA [Suspect]
     Active Substance: AXITINIB
     Indication: RENAL CELL CARCINOMA STAGE III
     Dosage: 5 MG, DAILY
     Route: 048
  2. INLYTA [Suspect]
     Active Substance: AXITINIB
     Dosage: 1 MG, DAILY
     Route: 048

REACTIONS (8)
  - Malaise [Unknown]
  - Neoplasm progression [Fatal]
  - Decubitus ulcer [Unknown]
  - Hypophagia [Unknown]
  - Catheter site haemorrhage [Unknown]
  - Thirst [Unknown]
  - Aphasia [Unknown]
  - Altered state of consciousness [Unknown]
